FAERS Safety Report 23388592 (Version 3)
Quarter: 2024Q3

REPORT INFORMATION
  Report Type: Report from Study
  Country: US (occurrence: US)
  Receive Date: 20240110
  Receipt Date: 20240731
  Transmission Date: 20241016
  Serious: Yes (Hospitalization)
  Sender: EISAI
  Company Number: US-Eisai-EC-2024-156749

PATIENT
  Age: 66 Year
  Sex: Female

DRUGS (5)
  1. LENVIMA [Suspect]
     Active Substance: LENVATINIB
     Indication: Thyroid cancer
     Dosage: STOPPED: //2023
     Route: 048
     Dates: start: 20230124
  2. LENVIMA [Suspect]
     Active Substance: LENVATINIB
     Route: 048
     Dates: start: 202310, end: 202312
  3. LENVIMA [Suspect]
     Active Substance: LENVATINIB
     Dosage: STOPPED: JAN//2024
     Route: 048
     Dates: start: 20240102
  4. LENVIMA [Suspect]
     Active Substance: LENVATINIB
     Dosage: STOPPED: //2024
     Route: 048
     Dates: start: 202401
  5. LENVIMA [Suspect]
     Active Substance: LENVATINIB
     Route: 048
     Dates: start: 2024

REACTIONS (5)
  - Diarrhoea [Recovered/Resolved]
  - Abdominal pain [Recovered/Resolved]
  - Decreased appetite [Unknown]
  - Hypotension [Recovering/Resolving]
  - Dehydration [Recovering/Resolving]

NARRATIVE: CASE EVENT DATE: 20231201
